FAERS Safety Report 7050912-8 (Version None)
Quarter: 2010Q4

REPORT INFORMATION
  Report Type: 
  Country: None (occurrence: None)
  Receive Date: 20101019
  Receipt Date: 20101008
  Transmission Date: 20110411
  Serious: No
  Sender: FDA-Public Use
  Company Number: US-JNJFOC-20101002947

PATIENT
  Sex: Female
  Weight: 61.24 kg

DRUGS (2)
  1. FENTANYL CITRATE [Suspect]
     Indication: SCIATIC NERVE INJURY
     Dosage: NDC: 0781-7240-55
     Route: 062
  2. FENTANYL CITRATE [Suspect]
     Indication: ARTHRITIS
     Dosage: NDC: 0781-7240-55
     Route: 062

REACTIONS (2)
  - INADEQUATE ANALGESIA [None]
  - TREATMENT NONCOMPLIANCE [None]
